FAERS Safety Report 14248567 (Version 1)
Quarter: 2017Q4

REPORT INFORMATION
  Report Type: Not Available
  Country: JP (occurrence: JP)
  Receive Date: 20171204
  Receipt Date: 20171204
  Transmission Date: 20180321
  Serious: Yes (Death, Hospitalization)
  Sender: FDA-Public Use
  Company Number: JP-ANIPHARMA-2017-JP-000095

PATIENT
  Age: 21 Year
  Sex: Male

DRUGS (1)
  1. AMITRIPTYLINE (NON-SPECIFIC) [Suspect]
     Active Substance: AMITRIPTYLINE

REACTIONS (9)
  - Ventricular fibrillation [Unknown]
  - Abdominal compartment syndrome [Unknown]
  - Ventricular tachycardia [Unknown]
  - Coma [Unknown]
  - Toxicity to various agents [Fatal]
  - Brain injury [Fatal]
  - Seizure [None]
  - Death [Fatal]
  - Intestinal obstruction [Unknown]
